FAERS Safety Report 24845298 (Version 1)
Quarter: 2025Q1

REPORT INFORMATION
  Report Type: Report from Study
  Country: US (occurrence: US)
  Receive Date: 20250115
  Receipt Date: 20250115
  Transmission Date: 20250408
  Serious: Yes (Hospitalization)
  Sender: pharmaAND
  Company Number: US-Pharmaand-2024001362

PATIENT
  Sex: Male

DRUGS (1)
  1. RUBRACA [Suspect]
     Active Substance: RUCAPARIB CAMSYLATE
     Indication: Pancreatic carcinoma
     Dosage: 300 MG, 1X/DAY
     Route: 048
     Dates: start: 20240104

REACTIONS (3)
  - Stent placement [Unknown]
  - Off label use [Recovered/Resolved]
  - Pancreatic carcinoma [Recovered/Resolved]
